FAERS Safety Report 4595124-2 (Version None)
Quarter: 2005Q1

REPORT INFORMATION
  Report Type: 
  Country: None (occurrence: None)
  Receive Date: 20050224
  Receipt Date: 20040726
  Transmission Date: 20050727
  Serious: Yes (Life-Threatening, Hospitalization)
  Sender: FDA-Public Use
  Company Number: GXKR2004GB00568

PATIENT
  Age: 61 Year
  Sex: Female

DRUGS (9)
  1. METFORMIN HCL [Suspect]
     Indication: DIABETES MELLITUS
  2. LISINOPRIL [Suspect]
  3. ACETYLSALICYLIC ACID (NGX) (ACETYLSALICYLIC ACID) [Suspect]
  4. IBUPROFEN [Suspect]
  5. ATENOLOL [Concomitant]
  6. CLOPIDOGREL BISULFATE [Concomitant]
  7. AMLODIPINE [Concomitant]
  8. NITRATES (NITRATES) [Concomitant]
  9. STARLIX [Concomitant]

REACTIONS (12)
  - ANION GAP INCREASED [None]
  - BLOOD GLUCOSE INCREASED [None]
  - BLOOD POTASSIUM INCREASED [None]
  - BLOOD PRESSURE DECREASED [None]
  - BRADYCARDIA [None]
  - DRUG TOXICITY [None]
  - HYPOGLYCAEMIA [None]
  - HYPOTONIA [None]
  - LACTIC ACIDOSIS [None]
  - OLIGURIA [None]
  - PANCREATITIS ACUTE [None]
  - RENAL FAILURE [None]
